FAERS Safety Report 25664537 (Version 2)
Quarter: 2025Q3

REPORT INFORMATION
  Report Type: Spontaneous
  Country: US (occurrence: US)
  Receive Date: 20250811
  Receipt Date: 20250815
  Transmission Date: 20251021
  Serious: Yes (Other)
  Sender: OPTINOSE INC
  Company Number: US-OPTINOSE US, INC.-2025OPT000129

PATIENT

DRUGS (1)
  1. XHANCE [Suspect]
     Active Substance: FLUTICASONE PROPIONATE
     Indication: Product used for unknown indication
     Dosage: 186 MICROGRAM (1 SPRAY PER NOSTRIL), BID
     Route: 045
     Dates: start: 20250508, end: 20250714

REACTIONS (8)
  - Cardiac flutter [Unknown]
  - Lethargy [Unknown]
  - Asthenia [Unknown]
  - Fatigue [Unknown]
  - Palpitations [Unknown]
  - Hypertension [Unknown]
  - Throat tightness [Unknown]
  - Wrong technique in device usage process [Unknown]

NARRATIVE: CASE EVENT DATE: 20250729
